FAERS Safety Report 8311307-X (Version None)
Quarter: 2012Q2

REPORT INFORMATION
  Report Type: 
  Country: None (occurrence: None)
  Receive Date: 20120425
  Receipt Date: 20120418
  Transmission Date: 20120825
  Serious: Yes (Death)
  Sender: FDA-Public Use
  Company Number: US-GLAXOSMITHKLINE-A0974989A

PATIENT
  Age: 15 Year
  Sex: Male

DRUGS (1)
  1. FLOLAN [Suspect]
     Dosage: 60NGKM UNKNOWN
     Route: 065

REACTIONS (1)
  - DEATH [None]
